FAERS Safety Report 5566116-1 (Version None)
Quarter: 2007Q4

REPORT INFORMATION
  Report Type: 
  Country: None (occurrence: None)
  Receive Date: 20071217
  Receipt Date: 20071217
  Transmission Date: 20080405
  Serious: Yes (Other)
  Sender: FDA-Public Use
  Company Number: None

PATIENT
  Age: 70 Year
  Sex: Male
  Weight: 75.9 kg

DRUGS (12)
  1. GENTAMICIN [Suspect]
     Indication: ENDOCARDITIS
     Dosage: 80 MG Q8H - 100 MG Q 12
     Dates: start: 20070802, end: 20070907
  2. DIGOXIN [Concomitant]
  3. LEVOTHYROXINE SODIUM [Concomitant]
  4. AMPICILLIN [Concomitant]
  5. ATORVASTATIN [Concomitant]
  6. MILK OF MAG. [Concomitant]
  7. HEPARIN [Concomitant]
  8. ENOXAPARIN SODIUM [Concomitant]
  9. WARFARIN SODIUM [Concomitant]
  10. TRAMADOL HCL [Concomitant]
  11. ACETAMINOPHEN [Concomitant]
  12. ZETIA [Concomitant]

REACTIONS (1)
  - OTOTOXICITY [None]
